FAERS Safety Report 22255881 (Version 1)
Quarter: 2023Q2

REPORT INFORMATION
  Report Type: Spontaneous
  Country: JP (occurrence: JP)
  Receive Date: 20230426
  Receipt Date: 20230426
  Transmission Date: 20230722
  Serious: Yes (Hospitalization)
  Sender: FDA-Public Use
  Company Number: JP-ferring-EVA202300438FERRINGPH

PATIENT

DRUGS (2)
  1. DESMOPRESSIN [Suspect]
     Active Substance: DESMOPRESSIN
     Indication: Product used for unknown indication
     Dosage: MANY TIMES
     Route: 065
  2. DESMOPRESSIN [Suspect]
     Active Substance: DESMOPRESSIN
     Dosage: TWICE DAILY (IN THE MORNING AND BEFORE BEDTIME)
     Route: 065

REACTIONS (4)
  - Hyponatraemia [Recovered/Resolved]
  - Fall [Recovered/Resolved]
  - Therapeutic response decreased [Unknown]
  - Treatment noncompliance [Unknown]
